FAERS Safety Report 5372899-6 (Version None)
Quarter: 2007Q2

REPORT INFORMATION
  Report Type: 
  Country: None (occurrence: None)
  Receive Date: 20070626
  Receipt Date: 20070611
  Transmission Date: 20071010
  Serious: Yes (Hospitalization)
  Sender: FDA-Public Use
  Company Number: TCI2007A00178

PATIENT
  Age: 66 Year
  Sex: Female

DRUGS (8)
  1. ACTOS [Suspect]
     Indication: DIABETES MELLITUS
     Dosage: SEE IMAGE
     Route: 048
     Dates: start: 20061222, end: 20070101
  2. CEFOTIAM HYDROCHLORIDE [Suspect]
     Dosage: INTRAVENOUS DRIP
     Route: 041
     Dates: start: 20070126
  3. AMARYL [Concomitant]
  4. SOLETON (ZALOTOPROFEN) [Concomitant]
  5. SELBEX (TEPRENONE) [Concomitant]
  6. MOHRUS TAPE (KETOPROFEN) [Concomitant]
  7. SALICYLIC ACID, PETROLATUM [Concomitant]
  8. CLOBETASOL PROPIONATE [Concomitant]

REACTIONS (4)
  - DRUG ERUPTION [None]
  - INFECTION [None]
  - PYREXIA [None]
  - RASH [None]
